FAERS Safety Report 4827916-6 (Version None)
Quarter: 2005Q4

REPORT INFORMATION
  Report Type: 
  Country: None (occurrence: None)
  Receive Date: 20051110
  Receipt Date: 20051108
  Transmission Date: 20060501
  Serious: Yes (Other)
  Sender: FDA-Public Use
  Company Number: 200513353BCC

PATIENT
  Age: 30 Year
  Sex: Male
  Weight: 81.6475 kg

DRUGS (2)
  1. BACTINE PAIN RELIEVING CLEANSING SPRAY [Suspect]
     Indication: SKIN LACERATION
     Dosage: OPHTHALMIC (OCULAR)
     Route: 047
     Dates: start: 20050817
  2. MULTI-VITAMINS [Concomitant]

REACTIONS (2)
  - ACCIDENTAL EXPOSURE [None]
  - CHEMICAL BURNS OF EYE [None]
